FAERS Safety Report 4546535-2 (Version None)
Quarter: 2005Q1

REPORT INFORMATION
  Report Type: 
  Country: None (occurrence: None)
  Receive Date: 20050105
  Receipt Date: 20041221
  Transmission Date: 20050727
  Serious: Yes (Death, Hospitalization)
  Sender: FDA-Public Use
  Company Number: 2004AL000634

PATIENT
  Age: 27 Year
  Sex: Male

DRUGS (2)
  1. CHILDREN'S APAP ELIXIR (ACETAMINOPHEN)  (ALPHARMA) [Suspect]
     Dosage: PO
     Route: 048
  2. INFANT'S APAP DROPS (ACETAMINOPHEN) (ALPHARMA) [Suspect]
     Dosage: PO
     Route: 048

REACTIONS (12)
  - BLOOD UREA INCREASED [None]
  - BRONCHOPNEUMONIA [None]
  - COMPLETED SUICIDE [None]
  - CREATINE URINE INCREASED [None]
  - DRUG TOXICITY [None]
  - GENERAL PHYSICAL HEALTH DETERIORATION [None]
  - HAEMODIALYSIS [None]
  - HEPATIC FAILURE [None]
  - HEPATIC NECROSIS [None]
  - INTENTIONAL MISUSE [None]
  - INTERNATIONAL NORMALISED RATIO INCREASED [None]
  - RENAL FAILURE [None]
